FAERS Safety Report 10200330 (Version 1)
Quarter: 2014Q2

REPORT INFORMATION
  Report Type: Spontaneous
  Country: GB (occurrence: GB)
  Receive Date: 20140527
  Receipt Date: 20140527
  Transmission Date: 20141212
  Serious: Yes (Other)
  Sender: FDA-Public Use
  Company Number: PHHY2014GB062367

PATIENT
  Age: 44 Year
  Sex: Female
  Weight: 63.5 kg

DRUGS (4)
  1. CO-CODAMOL [Suspect]
     Indication: PAIN
     Dosage: 2 DF, QID
     Route: 048
     Dates: start: 20140430
  2. DICLOFENAC [Concomitant]
  3. IBUPROFEN [Concomitant]
  4. INSULIN HUMAN [Concomitant]

REACTIONS (3)
  - Bradycardia [Recovered/Resolved]
  - Palpitations [Recovered/Resolved]
  - Somnolence [Recovered/Resolved]
